FAERS Safety Report 9223046 (Version 1)
Quarter: 2013Q2

REPORT INFORMATION
  Report Type: Spontaneous
  Country: FR (occurrence: FR)
  Receive Date: 20130410
  Receipt Date: 20130410
  Transmission Date: 20140414
  Serious: No
  Sender: FDA-Public Use
  Company Number: FR-JNJFOC-20130400752

PATIENT
  Age: 9 Decade
  Sex: Male

DRUGS (3)
  1. DUROGESIC [Suspect]
     Indication: CANCER PAIN
     Dosage: TWO 100 UG/HR PATCHES FOR EVERY 72 HOURS
     Route: 062
  2. DUROGESIC [Suspect]
     Indication: CANCER PAIN
     Dosage: ONE 100 UG/HR PATCHES FOR EVERY 24 HOURS
     Route: 062
  3. DUROGESIC [Suspect]
     Indication: CANCER PAIN
     Dosage: THREE 100 UG/HR PATCHES FOR EVERY 72 HOURS
     Route: 062

REACTIONS (4)
  - Off label use [Unknown]
  - Pain [Unknown]
  - Inappropriate schedule of drug administration [Unknown]
  - Drug prescribing error [Unknown]
